FAERS Safety Report 8828864 (Version 2)
Quarter: 2012Q4

REPORT INFORMATION
  Report Type: Report from Study
  Country: HU (occurrence: HU)
  Receive Date: 20121008
  Receipt Date: 20121010
  Transmission Date: 20130627
  Serious: Yes (Death)
  Sender: FDA-Public Use
  Company Number: HU-ROCHE-1142429

PATIENT
  Age: 55 Year
  Sex: Female
  Weight: 82 kg

DRUGS (3)
  1. AVASTIN [Suspect]
     Indication: BREAST CANCER
     Route: 065
     Dates: start: 20100920, end: 20101229
  2. ADRIAMYCIN [Suspect]
     Indication: BREAST CANCER
     Dosage: most recent dose prior to AE on 13/Jul/2012
     Route: 042
     Dates: start: 20120203, end: 20120713
  3. PACLITAXEL [Suspect]
     Indication: BREAST CANCER
     Route: 065
     Dates: start: 20100920, end: 20101229

REACTIONS (1)
  - Cardiac failure [Fatal]
